FAERS Safety Report 7757370-6 (Version None)
Quarter: 2011Q3

REPORT INFORMATION
  Report Type: 
  Country: None (occurrence: None)
  Receive Date: 20110916
  Receipt Date: 20110913
  Transmission Date: 20111222
  Serious: Yes (Other)
  Sender: FDA-Public Use
  Company Number: US-BAYER-2011-086043

PATIENT
  Sex: Female

DRUGS (3)
  1. OMNISCAN [Suspect]
     Indication: NUCLEAR MAGNETIC RESONANCE IMAGING
  2. OPTIMARK [Suspect]
     Indication: NUCLEAR MAGNETIC RESONANCE IMAGING
  3. MAGNEVIST [Suspect]
     Indication: NUCLEAR MAGNETIC RESONANCE IMAGING

REACTIONS (8)
  - NEPHROGENIC SYSTEMIC FIBROSIS [None]
  - EMOTIONAL DISTRESS [None]
  - GENERAL PHYSICAL HEALTH DETERIORATION [None]
  - ANXIETY [None]
  - PAIN [None]
  - FIBROSIS [None]
  - INJURY [None]
  - DEFORMITY [None]
